FAERS Safety Report 7753682-0 (Version None)
Quarter: 2011Q3

REPORT INFORMATION
  Report Type: 
  Country: None (occurrence: None)
  Receive Date: 20110915
  Receipt Date: 20110915
  Transmission Date: 20111222
  Serious: Yes (Hospitalization)
  Sender: FDA-Public Use
  Company Number: None

PATIENT
  Age: 54 Year
  Sex: Female
  Weight: 68.038 kg

DRUGS (1)
  1. CIPROFLOXACIN HCL [Suspect]
     Indication: URINARY TRACT INFECTION
     Dosage: TWICE DAILY
     Route: 048
     Dates: start: 20110908, end: 20110913

REACTIONS (2)
  - VERTIGO [None]
  - VOMITING [None]
